FAERS Safety Report 14370536 (Version 1)
Quarter: 2018Q1

REPORT INFORMATION
  Report Type: Spontaneous
  Country: US (occurrence: US)
  Receive Date: 20180109
  Receipt Date: 20180109
  Transmission Date: 20180509
  Serious: Yes (Hospitalization)
  Sender: FDA-Public Use
  Company Number: None

PATIENT
  Age: 70 Year
  Sex: Male

DRUGS (16)
  1. TRIAMCINOL [Concomitant]
  2. FLONASE [Concomitant]
     Active Substance: FLUTICASONE PROPIONATE
  3. GLIPIZIDE. [Concomitant]
     Active Substance: GLIPIZIDE
  4. METFORMIN [Concomitant]
     Active Substance: METFORMIN HYDROCHLORIDE
  5. OMEPRAZOLE. [Concomitant]
     Active Substance: OMEPRAZOLE
  6. HARVONI [Suspect]
     Active Substance: LEDIPASVIR\SOFOSBUVIR
     Indication: HEPATITIS C
     Dosage: 90-400MG QD ORAL
     Route: 048
     Dates: start: 20170729, end: 20171112
  7. CYMBALTA [Concomitant]
     Active Substance: DULOXETINE HYDROCHLORIDE
  8. FLOVENT [Concomitant]
     Active Substance: FLUTICASONE PROPIONATE
  9. GLUCOSE [Concomitant]
     Active Substance: DEXTROSE
  10. MIRTAZAPIN [Concomitant]
     Active Substance: MIRTAZAPINE
  11. THEOPHYLLI [Concomitant]
  12. LEVOTHYROX [Concomitant]
     Active Substance: LEVOTHYROXINE
  13. ALLOPURINO [Concomitant]
     Active Substance: ALLOPURINOL
  14. LOSARTAN. [Concomitant]
     Active Substance: LOSARTAN
  15. FLOMAX [Concomitant]
     Active Substance: TAMSULOSIN HYDROCHLORIDE
  16. ALBUTEROL. [Concomitant]
     Active Substance: ALBUTEROL

REACTIONS (2)
  - Cerebrovascular accident [None]
  - Seizure [None]

NARRATIVE: CASE EVENT DATE: 20170803
